FAERS Safety Report 20685104 (Version 2)
Quarter: 2022Q2

REPORT INFORMATION
  Report Type: Spontaneous
  Country: US (occurrence: US)
  Receive Date: 20220407
  Receipt Date: 20220502
  Transmission Date: 20220721
  Serious: No
  Sender: FDA-Public Use
  Company Number: US-LEO Pharma-341912

PATIENT
  Age: 20 Year
  Sex: Male

DRUGS (1)
  1. ADBRY [Suspect]
     Active Substance: TRALOKINUMAB-LDRM
     Indication: Product used for unknown indication
     Dosage: HAD THE FIRST 300 MG DOSE
     Route: 065
     Dates: start: 20220301

REACTIONS (3)
  - Lymphadenopathy [Unknown]
  - Erythema [Unknown]
  - Herpes zoster [Unknown]
